FAERS Safety Report 6640553-6 (Version None)
Quarter: 2010Q1

REPORT INFORMATION
  Report Type: 
  Country: None (occurrence: None)
  Receive Date: 20100318
  Receipt Date: 20100310
  Transmission Date: 20100710
  Serious: Yes (Other)
  Sender: FDA-Public Use
  Company Number: US-PFIZER INC-2010032172

PATIENT
  Sex: Male
  Weight: 72.574 kg

DRUGS (1)
  1. VIAGRA [Suspect]
     Dates: start: 20040101, end: 20040101

REACTIONS (4)
  - FEELING ABNORMAL [None]
  - GASTRITIS EROSIVE [None]
  - RENAL NEOPLASM [None]
  - WEIGHT DECREASED [None]
